FAERS Safety Report 5883275-1 (Version None)
Quarter: 2008Q3

REPORT INFORMATION
  Report Type: 
  Country: None (occurrence: None)
  Receive Date: 20080910
  Receipt Date: 20080910
  Transmission Date: 20090109
  Serious: Yes (Life-Threatening, Other)
  Sender: FDA-Public Use
  Company Number: None

PATIENT
  Age: 48 Year
  Sex: Male
  Weight: 90.7194 kg

DRUGS (4)
  1. ZIAGEN [Suspect]
  2. REYATAZ [Suspect]
  3. SUSTIVA [Suspect]
  4. NORVIR [Suspect]

REACTIONS (3)
  - ECONOMIC PROBLEM [None]
  - OVERDOSE [None]
  - TREATMENT NONCOMPLIANCE [None]
